FAERS Safety Report 12592052 (Version 1)
Quarter: 2016Q3

REPORT INFORMATION
  Report Type: Other
  Country: JP (occurrence: JP)
  Receive Date: 20160726
  Receipt Date: 20160726
  Transmission Date: 20161109
  Serious: Yes (Hospitalization)
  Sender: FDA-Public Use
  Company Number: JP-NOVEL LABORATORIES, INC-2016-03225

PATIENT
  Age: 88 Year
  Sex: Female

DRUGS (6)
  1. HALOPERIDOL. [Concomitant]
     Active Substance: HALOPERIDOL
     Indication: PRODUCT USED FOR UNKNOWN INDICATION
     Route: 065
  2. OXYCODONE [Suspect]
     Active Substance: OXYCODONE
     Indication: ABDOMINAL PAIN UPPER
     Dosage: 25MG DOSE OF OXYCODONE QUICK-RELEASE FORMULATION MEDICATION ONCE OR TWICE A DAY
     Route: 065
     Dates: start: 201508
  3. HALOPERIDOL. [Concomitant]
     Active Substance: HALOPERIDOL
     Route: 065
  4. PROCHLORPERAZINE. [Concomitant]
     Active Substance: PROCHLORPERAZINE
     Indication: NAUSEA
     Route: 065
  5. BIPERIDEN [Suspect]
     Active Substance: BIPERIDEN
     Indication: AKATHISIA
     Route: 065
  6. OXYCODONE [Suspect]
     Active Substance: OXYCODONE
     Route: 065
     Dates: start: 201510

REACTIONS (8)
  - Overdose [Unknown]
  - Delirium [Recovered/Resolved]
  - Somnolence [Unknown]
  - Paralysis [Recovered/Resolved]
  - Tremor [Recovered/Resolved]
  - Fall [Unknown]
  - Urinary retention [Unknown]
  - Akathisia [Recovering/Resolving]
